FAERS Safety Report 18489661 (Version 1)
Quarter: 2020Q4

REPORT INFORMATION
  Report Type: Spontaneous
  Country: US (occurrence: US)
  Receive Date: 20201110
  Receipt Date: 20201110
  Transmission Date: 20210114
  Serious: Yes (Life-Threatening, Hospitalization)
  Sender: FDA-Public Use
  Company Number: None

PATIENT
  Age: 22 Year
  Sex: Male
  Weight: 164.1 kg

DRUGS (6)
  1. FAMOTIDINE 20 MG/50 ML [Concomitant]
     Dates: start: 20201105, end: 20201105
  2. HYDROCORTISONE 100 MG/2 ML [Concomitant]
     Dates: start: 20201105, end: 20201105
  3. EPINEPHRINE 0.3 MG/0.3 ML [Concomitant]
     Dates: start: 20201105, end: 20201105
  4. DIPHENHYDRAMINE 50 MG/ML [Concomitant]
     Active Substance: DIPHENHYDRAMINE
     Dates: start: 20201105, end: 20201105
  5. PEG/L-ASPARAGINASE [Suspect]
     Active Substance: PEGASPARGASE
     Indication: ACUTE LYMPHOCYTIC LEUKAEMIA
     Dosage: ?          OTHER FREQUENCY:ONCE;?
     Route: 041
     Dates: start: 20201105, end: 20201105
  6. VINCRISTINE 2 MG/2 ML [Concomitant]
     Dates: start: 20201105, end: 20201105

REACTIONS (5)
  - Unresponsive to stimuli [None]
  - Mental status changes [None]
  - Infusion related reaction [None]
  - Anaphylactic reaction [None]
  - Dyspnoea [None]

NARRATIVE: CASE EVENT DATE: 20201105
